FAERS Safety Report 18111388 (Version 1)
Quarter: 2020Q3

REPORT INFORMATION
  Report Type: Spontaneous
  Country: US (occurrence: US)
  Receive Date: 20200804
  Receipt Date: 20200804
  Transmission Date: 20201103
  Serious: No
  Sender: FDA-Public Use
  Company Number: US-LEUCADIA PHARMACEUTICALS-2020LEU000149

PATIENT

DRUGS (1)
  1. VALRUBICIN [Suspect]
     Active Substance: VALRUBICIN
     Indication: PRODUCT USED FOR UNKNOWN INDICATION
     Dosage: FEW DOSES AT 800 MG WEEKLY
     Route: 043

REACTIONS (1)
  - Bladder spasm [Unknown]
